FAERS Safety Report 14426698 (Version 1)
Quarter: 2018Q1

REPORT INFORMATION
  Report Type: Spontaneous
  Country: US (occurrence: US)
  Receive Date: 20180123
  Receipt Date: 20180123
  Transmission Date: 20180509
  Serious: Yes (Hospitalization, Other)
  Sender: FDA-Public Use
  Company Number: US-GLAXOSMITHKLINE-US2018GSK010867

PATIENT
  Sex: Male

DRUGS (1)
  1. BREO ELLIPTA [Suspect]
     Active Substance: FLUTICASONE FUROATE\VILANTEROL TRIFENATATE
     Indication: PULMONARY FIBROSIS
     Dosage: UNK
     Route: 055
     Dates: start: 2017

REACTIONS (3)
  - Ureteric obstruction [Unknown]
  - Nephrolithiasis [Unknown]
  - Stent placement [Unknown]

NARRATIVE: CASE EVENT DATE: 2017
